FAERS Safety Report 8125777-3 (Version None)
Quarter: 2012Q1

REPORT INFORMATION
  Report Type: 
  Country: None (occurrence: None)
  Receive Date: 20120209
  Receipt Date: 20120206
  Transmission Date: 20120608
  Serious: No
  Sender: FDA-Public Use
  Company Number: US-BAYER-2012-013113

PATIENT
  Age: 74 Year
  Sex: Female
  Weight: 104 kg

DRUGS (6)
  1. GLUCOPHAGE [Concomitant]
  2. ACCUPRIL [Concomitant]
  3. ASPIRIN [Concomitant]
  4. SYNTHROID [Concomitant]
  5. NAPROXEN (ALEVE) [Suspect]
     Dosage: 1 TAB TWICE DAILY
     Dates: start: 20120201, end: 20120206
  6. DYAZIDE [Concomitant]

REACTIONS (1)
  - PAIN [None]
